FAERS Safety Report 6865440-X (Version None)
Quarter: 2010Q3

REPORT INFORMATION
  Report Type: 
  Country: None (occurrence: None)
  Receive Date: 20100721
  Receipt Date: 20080421
  Transmission Date: 20110219
  Serious: No
  Sender: FDA-Public Use
  Company Number: US-PFIZER INC-2008036200

PATIENT
  Sex: Female
  Weight: 77.3 kg

DRUGS (8)
  1. CHANTIX [Suspect]
     Indication: SMOKING CESSATION THERAPY
     Dates: start: 20080412
  2. METOPROLOL [Concomitant]
     Indication: HYPERTENSION
  3. METOPROLOL [Concomitant]
     Indication: CARDIAC DISORDER
  4. LISINOPRIL [Concomitant]
     Indication: HYPERTENSION
  5. LISINOPRIL [Concomitant]
     Indication: CARDIAC DISORDER
  6. ALEVE (CAPLET) [Concomitant]
     Indication: ARTHRITIS
  7. LIPITOR [Concomitant]
     Indication: BLOOD CHOLESTEROL INCREASED
  8. RANITIDINE [Concomitant]
     Indication: GASTROOESOPHAGEAL REFLUX DISEASE

REACTIONS (4)
  - FLATULENCE [None]
  - GASTROOESOPHAGEAL REFLUX DISEASE [None]
  - NAUSEA [None]
  - VOMITING [None]
